FAERS Safety Report 5662369-X (Version None)
Quarter: 2008Q1

REPORT INFORMATION
  Report Type: 
  Country: None (occurrence: None)
  Receive Date: 20080310
  Receipt Date: 20080222
  Transmission Date: 20080703
  Serious: No
  Sender: FDA-Public Use
  Company Number: 002#2#2008-00063

PATIENT
  Age: 59 Year
  Sex: Female
  Weight: 85 kg

DRUGS (20)
  1. NEUPRO [Suspect]
     Indication: PARKINSON'S DISEASE
     Dosage: SEE IMAGE
     Route: 062
     Dates: start: 20071102, end: 20071113
  2. NEUPRO [Suspect]
     Indication: PARKINSON'S DISEASE
     Dosage: SEE IMAGE
     Route: 062
     Dates: start: 20071114, end: 20071126
  3. NEUPRO [Suspect]
     Indication: PARKINSON'S DISEASE
     Dosage: SEE IMAGE
     Route: 062
     Dates: start: 20071127, end: 20071216
  4. NEUPRO [Suspect]
     Indication: PARKINSON'S DISEASE
     Dosage: SEE IMAGE
     Route: 062
     Dates: start: 20071216
  5. DEPAKOTE [Concomitant]
  6. DIAZEPAM [Concomitant]
  7. LAMICTAL [Concomitant]
  8. LEVOTHYROXINE SODIUM [Concomitant]
  9. SELEGILINE HCL [Concomitant]
  10. VICODIN [Concomitant]
  11. LORATADINE [Concomitant]
  12. COLACE [Concomitant]
  13. M.V.I. [Concomitant]
  14. GABAPENTIN [Concomitant]
  15. SEROQUEL [Concomitant]
  16. VITAMIN D [Concomitant]
  17. CALCIUM [Concomitant]
  18. OMEGA 3 [Concomitant]
  19. SENNA [Concomitant]
  20. ASCORBIC ACID [Concomitant]

REACTIONS (10)
  - ANXIETY [None]
  - APPLICATION SITE ERYTHEMA [None]
  - APPLICATION SITE IRRITATION [None]
  - APPLICATION SITE SCAR [None]
  - INSOMNIA [None]
  - KELOID SCAR [None]
  - PHARMACEUTICAL PRODUCT COMPLAINT [None]
  - PRURITUS [None]
  - SOMNOLENCE [None]
  - WEIGHT INCREASED [None]
